FAERS Safety Report 4931757-9 (Version None)
Quarter: 2006Q1

REPORT INFORMATION
  Report Type: 
  Country: None (occurrence: None)
  Receive Date: 20060303
  Receipt Date: 20060221
  Transmission Date: 20060701
  Serious: Yes (Hospitalization)
  Sender: FDA-Public Use
  Company Number: US-BRISTOL-MYERS SQUIBB COMPANY-13290440

PATIENT
  Age: 87 Year
  Sex: Female
  Weight: 61 kg

DRUGS (1)
  1. BUSPAR [Suspect]

REACTIONS (2)
  - CHOLELITHIASIS [None]
  - HYPONATRAEMIA [None]
